FAERS Safety Report 7339860-3 (Version None)
Quarter: 2011Q1

REPORT INFORMATION
  Report Type: 
  Country: None (occurrence: None)
  Receive Date: 20110304
  Receipt Date: 20110304
  Transmission Date: 20110831
  Serious: Yes (Other)
  Sender: FDA-Public Use
  Company Number: None

PATIENT
  Age: 18 Year
  Sex: Female
  Weight: 68.0396 kg

DRUGS (2)
  1. AMBIEN [Suspect]
     Indication: INSOMNIA
     Dosage: 10MG NIGHTLY PO
     Route: 048
     Dates: start: 20101105, end: 20110224
  2. CITALOPRAM HYDROBROMIDE [Concomitant]

REACTIONS (3)
  - FEAR [None]
  - SLEEP TERROR [None]
  - HALLUCINATION, VISUAL [None]
